FAERS Safety Report 4922362-9 (Version None)
Quarter: 2006Q1

REPORT INFORMATION
  Report Type: 
  Country: None (occurrence: None)
  Receive Date: 20060224
  Receipt Date: 20051020
  Transmission Date: 20060701
  Serious: Yes (Hospitalization)
  Sender: FDA-Public Use
  Company Number: US-MERCK-0510USA08411

PATIENT
  Age: 49 Year
  Sex: Male

DRUGS (3)
  1. VIOXX [Suspect]
     Route: 048
     Dates: start: 20030109, end: 20040903
  2. ZOLOFT [Concomitant]
     Route: 065
  3. LORTAB [Concomitant]
     Route: 065

REACTIONS (10)
  - ANGINA PECTORIS [None]
  - BACK PAIN [None]
  - CARDIOMYOPATHY [None]
  - CEREBROVASCULAR ACCIDENT [None]
  - CEREBROVASCULAR DISORDER [None]
  - CORONARY ARTERY DISEASE [None]
  - HYPERCHOLESTEROLAEMIA [None]
  - INJURY [None]
  - MYOCARDIAL INFARCTION [None]
  - TOBACCO ABUSE [None]
